FAERS Safety Report 16638106 (Version 1)
Quarter: 2019Q3

REPORT INFORMATION
  Report Type: Spontaneous
  Country: CN (occurrence: CN)
  Receive Date: 20190726
  Receipt Date: 20190726
  Transmission Date: 20191004
  Serious: Yes (Other)
  Sender: FDA-Public Use
  Company Number: CN-HQ SPECIALTY-CN-2019INT000185

PATIENT

DRUGS (3)
  1. CISPLATIN. [Suspect]
     Active Substance: CISPLATIN
     Indication: T-CELL LYMPHOMA
     Dosage: 25 MG/M2, GIVEN INTRAVENOUSLY OVER 60 MINUTES ON DAYS 1-3
     Route: 042
  2. GEMCITABINE. [Suspect]
     Active Substance: GEMCITABINE
     Indication: T-CELL LYMPHOMA
     Dosage: 1000 MG/M2 INTRAVENOUSLY OVER 30 MINUTES ON DAYS 1 AND 8
     Route: 042
  3. DEXAMETHASONE. [Suspect]
     Active Substance: DEXAMETHASONE
     Indication: T-CELL LYMPHOMA
     Dosage: 20 MG/D ORALLY ON DAYS 1-4 AND 11-14

REACTIONS (1)
  - Febrile neutropenia [Unknown]
